FAERS Safety Report 5132102-9 (Version None)
Quarter: 2006Q4

REPORT INFORMATION
  Report Type: 
  Country: None (occurrence: None)
  Receive Date: 20061017
  Receipt Date: 20060831
  Transmission Date: 20070319
  Serious: Yes (Hospitalization)
  Sender: FDA-Public Use
  Company Number: 2006BH013175

PATIENT
  Age: 55 Year
  Sex: Female
  Weight: 89 kg

DRUGS (1)
  1. EXTRANEAL [Suspect]
     Indication: HAEMODIALYSIS
     Dosage: 2 ML; EVERY DAY; IP
     Route: 033
     Dates: start: 20060823, end: 20060828

REACTIONS (4)
  - CELLULITIS [None]
  - EXFOLIATIVE RASH [None]
  - OPEN WOUND [None]
  - PAIN [None]
